FAERS Safety Report 9909188 (Version 1)
Quarter: 2014Q1

REPORT INFORMATION
  Report Type: Report from Study
  Country: ES (occurrence: ES)
  Receive Date: 20140219
  Receipt Date: 20140219
  Transmission Date: 20141002
  Serious: Yes (Hospitalization)
  Sender: FDA-Public Use
  Company Number: ES-ABBVIE-14P-144-1203785-00

PATIENT
  Age: 54 Year
  Sex: Female

DRUGS (6)
  1. SECALIP [Suspect]
     Indication: HYPERLIPIDAEMIA
     Route: 048
  2. IRBESARTAN [Interacting]
     Indication: HYPERTENSION
     Route: 048
     Dates: start: 201011, end: 20110929
  3. DIANBEN [Interacting]
     Indication: DIABETES MELLITUS
     Route: 048
     Dates: end: 20110930
  4. CLOPIDOGREL [Concomitant]
     Indication: CARDIOVASCULAR EVENT PROPHYLAXIS
     Route: 048
     Dates: start: 200708
  5. HEMOVAS [Concomitant]
     Indication: PRODUCT USED FOR UNKNOWN INDICATION
     Route: 048
  6. TENORETIC [Concomitant]
     Indication: HYPERTENSION
     Dosage: 100MG ATENOLOL/25MG CHLORTALIDONE:FORM STRENGTH:100MG ATENOLOL/25MG CHLORTALIDONE
     Route: 048
     Dates: start: 200904, end: 20110929

REACTIONS (5)
  - Hyperkalaemia [Recovered/Resolved]
  - Renal failure acute [Recovered/Resolved]
  - Drug interaction [Unknown]
  - Malaise [Unknown]
  - Urinary tract infection [Recovered/Resolved]
